FAERS Safety Report 8322189-4 (Version None)
Quarter: 2012Q2

REPORT INFORMATION
  Report Type: 
  Country: None (occurrence: None)
  Receive Date: 20120430
  Receipt Date: 20110706
  Transmission Date: 20120825
  Serious: No
  Sender: FDA-Public Use
  Company Number: US-COVIDIEN/TYCO HEALTHCARE/MALLINCKRODT-T201101373

PATIENT
  Sex: Female
  Weight: 73.923 kg

DRUGS (10)
  1. SENNA                              /00142201/ [Concomitant]
     Dosage: UNK, PRN
  2. BUMETANIDE [Concomitant]
     Dosage: 0.5 MG, UNK
  3. DIAZEPAM [Concomitant]
     Indication: FIBROMYALGIA
     Dosage: 1 MG, BID
  4. ASPIRIN [Concomitant]
     Indication: CARDIOVASCULAR EVENT PROPHYLAXIS
     Dosage: 81 MG, QD
  5. LUTEIN [Concomitant]
     Indication: MACULAR DEGENERATION
     Dosage: UNK
  6. VITAMIN D [Concomitant]
  7. HYDROCODONE BITARTRATE + ACETAMINOPHEN [Suspect]
     Indication: ARTHRITIS
     Dosage: 4 1/2 TABLETS PER DAY
     Dates: start: 20110401, end: 20110701
  8. HYDROCODONE BITARTRATE + ACETAMINOPHEN [Suspect]
     Dosage: 3 1/2 TABLETS PER DAY
     Dates: start: 20110701, end: 20110705
  9. HYDROCODONE BITARTRATE + ACETAMINOPHEN [Suspect]
     Dosage: 2 TABLETS PER DAY
     Dates: start: 20110706
  10. LACTAID [Concomitant]
     Dosage: UNK, PRN

REACTIONS (5)
  - ERYTHEMA [None]
  - WITHDRAWAL SYNDROME [None]
  - URTICARIA [None]
  - SOMNOLENCE [None]
  - PRURITUS [None]
